FAERS Safety Report 7482919-0 (Version None)
Quarter: 2011Q2

REPORT INFORMATION
  Report Type: 
  Country: None (occurrence: None)
  Receive Date: 20110516
  Receipt Date: 20110505
  Transmission Date: 20111010
  Serious: Yes (Death)
  Sender: FDA-Public Use
  Company Number: US-MYLANLABS-2011S1009214

PATIENT
  Age: 39 Year
  Sex: Female

DRUGS (2)
  1. LOXAPINE [Suspect]
  2. CLOZAPINE [Suspect]
     Route: 048
     Dates: start: 20100917

REACTIONS (2)
  - CARDIAC DISORDER [None]
  - NEUROLEPTIC MALIGNANT SYNDROME [None]
